FAERS Safety Report 15693247 (Version 4)
Quarter: 2019Q1

REPORT INFORMATION
  Report Type: Report from Study
  Country: US (occurrence: US)
  Receive Date: 20181206
  Receipt Date: 20190205
  Transmission Date: 20190417
  Serious: Yes (Death, Life-Threatening, Hospitalization, Disabling, Other)
  Sender: FDA-Public Use
  Company Number: US-TAKEDA-2018MPI016602

PATIENT
  Age: 74 Year
  Sex: Male
  Weight: 56 kg

DRUGS (18)
  1. DECADRON [Concomitant]
     Active Substance: DEXAMETHASONE
     Dosage: 20 MG, UNK
     Route: 048
     Dates: start: 20180413, end: 20180606
  2. BORTEZOMIB. [Suspect]
     Active Substance: BORTEZOMIB
     Indication: PLASMA CELL MYELOMA
     Dosage: 1.5 MG, UNK
     Route: 058
     Dates: start: 20170708, end: 20170718
  3. FILGRASTIM [Concomitant]
     Active Substance: FILGRASTIM
     Dosage: UNK
     Route: 065
  4. DECADRON [Concomitant]
     Active Substance: DEXAMETHASONE
     Dosage: 40 MG, UNK
     Route: 048
     Dates: start: 20170708, end: 20170711
  5. LOVENOX [Concomitant]
     Active Substance: ENOXAPARIN SODIUM
     Dosage: UNK
     Route: 065
  6. KYPROLIS [Concomitant]
     Active Substance: CARFILZOMIB
     Dosage: 36 MG/M2, 1/WEEK
     Route: 042
     Dates: start: 20180215, end: 20180326
  7. REVLIMID [Concomitant]
     Active Substance: LENALIDOMIDE
     Dosage: 15 MG, UNK
     Route: 048
     Dates: start: 20171114, end: 20180214
  8. OPIOIDS [Concomitant]
     Active Substance: UNSPECIFIED INGREDIENT
     Route: 065
  9. DECADRON [Concomitant]
     Active Substance: DEXAMETHASONE
     Dosage: 40 MG, UNK
     Route: 048
     Dates: start: 20170819, end: 20170822
  10. THALOMID [Concomitant]
     Active Substance: THALIDOMIDE
     Dosage: 200 MG, QD
     Route: 048
     Dates: start: 20180413, end: 20180606
  11. DECADRON [Concomitant]
     Active Substance: DEXAMETHASONE
     Dosage: 40 MG/M2, UNK
     Route: 042
     Dates: start: 20180609, end: 20180609
  12. REVLIMID [Concomitant]
     Active Substance: LENALIDOMIDE
     Dosage: 10 MG, UNK
     Route: 048
     Dates: start: 20180215, end: 20180402
  13. THALOMID [Concomitant]
     Active Substance: THALIDOMIDE
     Dosage: 200 MG, UNK
     Route: 048
     Dates: start: 20170819, end: 20170822
  14. DECADRON [Concomitant]
     Active Substance: DEXAMETHASONE
     Dosage: 12 MG, 1/WEEK
     Route: 048
     Dates: start: 20171114
  15. THALOMID [Concomitant]
     Active Substance: THALIDOMIDE
     Dosage: 100 MG, UNK
     Route: 048
     Dates: start: 20170708, end: 20170728
  16. BORTEZOMIB. [Suspect]
     Active Substance: BORTEZOMIB
     Dosage: 2 MG, UNK
     Route: 042
     Dates: start: 20170819, end: 20170822
  17. BORTEZOMIB. [Suspect]
     Active Substance: BORTEZOMIB
     Dosage: 1.3 MG/KG, UNK
     Route: 042
     Dates: start: 20180413
  18. DECADRON [Concomitant]
     Active Substance: DEXAMETHASONE
     Dosage: 12 MG, 1/WEEK
     Route: 048
     Dates: start: 20180214, end: 20180413

REACTIONS (2)
  - Megacolon [Fatal]
  - Plasma cell myeloma [Fatal]

NARRATIVE: CASE EVENT DATE: 20180605
